FAERS Safety Report 6862378-9 (Version None)
Quarter: 2010Q3

REPORT INFORMATION
  Report Type: 
  Country: None (occurrence: None)
  Receive Date: 20100721
  Receipt Date: 20100712
  Transmission Date: 20110219
  Serious: Yes (Hospitalization)
  Sender: FDA-Public Use
  Company Number: CA-SANOFI-AVENTIS-A01200909575

PATIENT
  Age: 76 Year
  Sex: Female
  Weight: 56 kg

DRUGS (15)
  1. OXALIPLATIN [Suspect]
     Dosage: DOSE TEXT: CUMMULATIVE DOSE 900 MG
     Route: 041
  2. LEUCOVORIN CALCIUM [Suspect]
     Dosage: DOSE TEXT: CUMMULATIVE DOSE 4480 MG
     Route: 041
  3. FLUOROURACIL [Suspect]
     Dosage: DOSE TEXT: CUMMULATIVE DOSE 8800 BOLUS, 8400 MG INFUSION
     Route: 041
  4. INVESTIGATIONAL DRUG [Concomitant]
     Dates: start: 20090521
  5. GLYBURIDE [Concomitant]
     Dates: start: 20060101
  6. FOSAMAX [Concomitant]
     Dates: start: 20080101
  7. TYLENOL W/ CODEINE NO. 3 [Concomitant]
     Dates: start: 20090201
  8. MOTILIUM [Concomitant]
     Dates: start: 20090521
  9. ZOFRAN [Concomitant]
     Dates: start: 20090521
  10. DECADRON [Concomitant]
     Dates: start: 20090521
  11. ATACAND [Concomitant]
     Dates: start: 20060101
  12. CRESTOR [Concomitant]
     Dates: start: 20060101
  13. ELTROXIN ^GLAXO^ [Concomitant]
     Dates: start: 20010101
  14. FAMOTIDINE [Concomitant]
     Dates: start: 20060101
  15. HEPARIN [Concomitant]
     Indication: PROPHYLAXIS
     Dosage: DOSE:500 UNIT(S)
     Route: 042
     Dates: start: 20090604, end: 20090604

REACTIONS (1)
  - DIABETIC KETOACIDOSIS [None]
